FAERS Safety Report 17183830 (Version 3)
Quarter: 2020Q3

REPORT INFORMATION
  Report Type: Report from Study
  Country: US (occurrence: US)
  Receive Date: 20191220
  Receipt Date: 20200702
  Transmission Date: 20201102
  Serious: Yes (Death, Other)
  Sender: FDA-Public Use
  Company Number: NVSC2019US073320

PATIENT
  Age: 8 Year
  Sex: Male

DRUGS (3)
  1. CYCLOPHOSPHAMIDE. [Concomitant]
     Active Substance: CYCLOPHOSPHAMIDE
     Indication: CHEMOTHERAPY
     Dosage: UNK
     Route: 065
  2. KYMRIAH [Suspect]
     Active Substance: TISAGENLECLEUCEL
     Indication: B-CELL TYPE ACUTE LEUKAEMIA
     Dosage: UNK, ONCE/SINGLE
     Route: 041
     Dates: start: 2019
  3. FLUDARABINE [Concomitant]
     Active Substance: FLUDARABINE PHOSPHATE
     Indication: CHEMOTHERAPY
     Dosage: UNK
     Route: 065

REACTIONS (20)
  - Hypogammaglobulinaemia [Recovered/Resolved]
  - Gastrointestinal infection [Unknown]
  - Urinary tract infection [Unknown]
  - Neutrophil count decreased [Recovered/Resolved]
  - Platelet count decreased [Recovering/Resolving]
  - Hypotension [Unknown]
  - B-cell type acute leukaemia [Fatal]
  - Cytokine release syndrome [Recovered/Resolved]
  - Minimal residual disease [Unknown]
  - Pneumonia [Unknown]
  - White blood cell count decreased [Recovering/Resolving]
  - Coronavirus infection [Unknown]
  - Adenovirus infection [Unknown]
  - BK virus infection [Unknown]
  - Sinus disorder [Unknown]
  - Haemoglobin decreased [Recovering/Resolving]
  - Haematocrit decreased [Recovering/Resolving]
  - Lymphocyte count decreased [Recovering/Resolving]
  - Pyrexia [Unknown]
  - Alpha haemolytic streptococcal infection [Unknown]
